FAERS Safety Report 26206732 (Version 1)
Quarter: 2025Q4

REPORT INFORMATION
  Report Type: Spontaneous
  Country: EU (occurrence: EU)
  Receive Date: 20251229
  Receipt Date: 20251229
  Transmission Date: 20260118
  Serious: Yes (Other)
  Sender: VELOXIS PHARMACEUTICALS
  Company Number: EU-VELOXIS PHARMACEUTICALS, INC.-2020-VEL-00246

PATIENT
  Age: 59 Year

DRUGS (5)
  1. TACROLIMUS [Suspect]
     Active Substance: TACROLIMUS
     Indication: Renal transplant
     Dosage: UNK
  2. RITUXIMAB [Concomitant]
     Active Substance: RITUXIMAB
     Indication: Focal segmental glomerulosclerosis
     Dosage: D0
  3. RITUXIMAB [Concomitant]
     Active Substance: RITUXIMAB
     Dosage: D7
  4. IRBESARTAN [Concomitant]
     Active Substance: IRBESARTAN
     Indication: Renin-angiotensin system inhibition
     Dosage: UNK
  5. IRBESARTAN [Concomitant]
     Active Substance: IRBESARTAN
     Dosage: UNK

REACTIONS (5)
  - Arteriovenous fistula thrombosis [Unknown]
  - Shock haemorrhagic [Unknown]
  - Faecaloma [Unknown]
  - Focal segmental glomerulosclerosis [Unknown]
  - Peritonitis [Unknown]
